FAERS Safety Report 14700419 (Version 1)
Quarter: 2018Q1

REPORT INFORMATION
  Report Type: Spontaneous
  Country: US (occurrence: US)
  Receive Date: 20180330
  Receipt Date: 20180330
  Transmission Date: 20180509
  Serious: Yes (Life-Threatening, Hospitalization, Other)
  Sender: FDA-Public Use
  Company Number: None

PATIENT
  Age: 84 Year
  Sex: Male
  Weight: 81.65 kg

DRUGS (11)
  1. QUETIAPINE 25MG [Suspect]
     Active Substance: QUETIAPINE
     Indication: SLEEP DISORDER
     Dosage: 1 PILL NIGHTLY BY MOUTH
     Route: 048
     Dates: start: 20180206, end: 20180206
  2. QUETIAPINE 25MG [Suspect]
     Active Substance: QUETIAPINE
     Indication: BALANCE DISORDER
     Dosage: 1 PILL NIGHTLY BY MOUTH
     Route: 048
     Dates: start: 20180206, end: 20180206
  3. POTASSIUM CL [Concomitant]
     Active Substance: POTASSIUM CHLORIDE
  4. COQ10 [Concomitant]
     Active Substance: UBIDECARENONE
  5. FUROSEMIDE. [Concomitant]
     Active Substance: FUROSEMIDE
  6. CLOPIDOGREL [Concomitant]
     Active Substance: CLOPIDOGREL BISULFATE
  7. VITAMIN D3 [Concomitant]
     Active Substance: CHOLECALCIFEROL
  8. AMLODIPINE [Concomitant]
     Active Substance: AMLODIPINE BESYLATE
  9. ASPIRIN. [Concomitant]
     Active Substance: ASPIRIN
  10. DOXAZOSIN [Concomitant]
     Active Substance: DOXAZOSIN\DOXAZOSIN MESYLATE
  11. VITAMIN B COMPLEX [Concomitant]
     Active Substance: CYANOCOBALAMIN\DEXPANTHENOL\NIACINAMIDE\PYRIDOXINE HYDROCHLORIDE\RIBOFLAVIN 5^-PHOSPHATE SODIUM\THIAMINE HYDROCHLORIDE\VITAMIN B COMPLEX

REACTIONS (7)
  - Insomnia [None]
  - Logorrhoea [None]
  - Gait disturbance [None]
  - Tardive dyskinesia [None]
  - Protrusion tongue [None]
  - Incoherent [None]
  - Seizure [None]

NARRATIVE: CASE EVENT DATE: 20180207
